FAERS Safety Report 6342575-1 (Version None)
Quarter: 2009Q3

REPORT INFORMATION
  Report Type: 
  Country: None (occurrence: None)
  Receive Date: 20090908
  Receipt Date: 20090831
  Transmission Date: 20100115
  Serious: Yes (Other)
  Sender: FDA-Public Use
  Company Number: US-JNJFOC-20090901511

PATIENT
  Sex: Male

DRUGS (4)
  1. PEPCID AC [Suspect]
     Route: 048
  2. PEPCID AC [Suspect]
     Indication: DRUG USE FOR UNKNOWN INDICATION
     Dosage: 10-20 MG 1-2 TIMES DAILY
     Route: 048
  3. ZYRTEC [Suspect]
     Indication: HYPERSENSITIVITY
  4. PREDNISONE TAB [Concomitant]
     Indication: HYPERSENSITIVITY

REACTIONS (3)
  - APHONIA [None]
  - MYALGIA [None]
  - THROAT TIGHTNESS [None]
